FAERS Safety Report 4954371-8 (Version None)
Quarter: 2006Q1

REPORT INFORMATION
  Report Type: 
  Country: None (occurrence: None)
  Receive Date: 20060327
  Receipt Date: 20060316
  Transmission Date: 20060701
  Serious: Yes (Hospitalization)
  Sender: FDA-Public Use
  Company Number: JP-JNJFOC-20060201215

PATIENT
  Sex: Female
  Weight: 43 kg

DRUGS (10)
  1. REMICADE [Suspect]
     Route: 042
  2. REMICADE [Suspect]
     Indication: CROHN'S DISEASE
     Route: 042
  3. PREDONINE [Concomitant]
     Route: 042
  4. PREDONINE [Concomitant]
     Indication: CROHN'S DISEASE
     Dosage: TAPERED
     Route: 042
  5. PREDNISOLONE [Concomitant]
     Indication: CROHN'S DISEASE
     Route: 048
  6. SALAZOPYRIN [Concomitant]
     Route: 048
  7. SALAZOPYRIN [Concomitant]
     Indication: CROHN'S DISEASE
     Route: 048
  8. LECTISOL [Concomitant]
     Route: 048
  9. AZELASTINE HCL [Concomitant]
     Route: 048
  10. COLCHICINE [Concomitant]
     Route: 048

REACTIONS (1)
  - BREAST CANCER [None]
